FAERS Safety Report 9388786 (Version 1)
Quarter: 2013Q3

REPORT INFORMATION
  Report Type: Spontaneous
  Country: GB (occurrence: GB)
  Receive Date: 20130708
  Receipt Date: 20130708
  Transmission Date: 20140515
  Serious: Yes (Other)
  Sender: FDA-Public Use
  Company Number: PHHY2013GB069762

PATIENT
  Age: 20 Year
  Sex: Female
  Weight: 48.98 kg

DRUGS (5)
  1. CO-AMOXICLAV [Suspect]
     Indication: VAGINITIS BACTERIAL
     Dosage: 1 DF
     Route: 048
     Dates: start: 20130611, end: 20130615
  2. METRONIDAZOLE [Suspect]
     Indication: URINARY TRACT INFECTION
     Dosage: 400 MG
     Route: 048
     Dates: start: 20130611, end: 20130615
  3. MICROGYNON [Concomitant]
  4. NUROFEN [Concomitant]
  5. TYROZETS [Concomitant]

REACTIONS (5)
  - Musculoskeletal stiffness [Recovering/Resolving]
  - Asthenia [Not Recovered/Not Resolved]
  - Vomiting [Recovered/Resolved]
  - Rash generalised [Not Recovered/Not Resolved]
  - Dizziness [Unknown]
